FAERS Safety Report 24773345 (Version 1)
Quarter: 2024Q4

REPORT INFORMATION
  Report Type: Spontaneous
  Country: FR (occurrence: FR)
  Receive Date: 20241225
  Receipt Date: 20241225
  Transmission Date: 20250114
  Serious: Yes (Other)
  Sender: AUROBINDO
  Company Number: FR-SANDOZ-SDZ2024FR099547

PATIENT
  Age: 70 Year
  Sex: Female

DRUGS (4)
  1. VORICONAZOLE [Suspect]
     Active Substance: VORICONAZOLE
     Indication: Candida infection
     Dosage: 400 MILLIGRAM, ONCE A DAY [200 MG BID (16MG/KG/D)]
     Route: 065
     Dates: start: 2023, end: 2023
  2. VORICONAZOLE [Suspect]
     Active Substance: VORICONAZOLE
     Indication: Chronic granulomatous disease
  3. FLUCYTOSINE [Suspect]
     Active Substance: FLUCYTOSINE
     Indication: Candida infection
     Dosage: 1250 MILLIGRAM, ONCE A DAY [1250 MG QID (104MG/KG/D) FOR 2 WEEKS]
     Route: 065
  4. FLUCYTOSINE [Suspect]
     Active Substance: FLUCYTOSINE
     Dosage: 104 MILLIGRAM/KILOGRAM, ONCE A DAY
     Route: 065
     Dates: start: 2023, end: 2023

REACTIONS (3)
  - Drug ineffective [Unknown]
  - Photosensitivity reaction [Unknown]
  - Drug level decreased [Unknown]

NARRATIVE: CASE EVENT DATE: 20230101
